FAERS Safety Report 14683864 (Version 9)
Quarter: 2024Q1

REPORT INFORMATION
  Report Type: Report from Study
  Country: NL (occurrence: NL)
  Receive Date: 20180327
  Receipt Date: 20240301
  Transmission Date: 20240409
  Serious: Yes (Other)
  Sender: FDA-Public Use
  Company Number: NL-AUROBINDO-AUR-APL-2018-010664

PATIENT
  Age: 13 Month
  Sex: Male

DRUGS (5)
  1. ITRACONAZOLE [Interacting]
     Active Substance: ITRACONAZOLE
     Indication: Prophylaxis
     Dosage: UNK (A HALF-LIFE TIME UP TO TWO DAYS)
     Route: 065
  2. VORICONAZOLE [Interacting]
     Active Substance: VORICONAZOLE
     Indication: Aspergillus infection
     Dosage: 9 MILLIGRAM/KILOGRAM, 3 TIMES A DAY,,LOADING DOSE
     Route: 042
  3. VORICONAZOLE [Interacting]
     Active Substance: VORICONAZOLE
     Dosage: 8 MILLIGRAM/KILOGRAM, 3 TIMES A DAY,MAINTAINANCE DOSE
     Route: 042
  4. VORICONAZOLE [Interacting]
     Active Substance: VORICONAZOLE
     Dosage: 18 MILLIGRAM/KILOGRAM,6 MG/KG, TID
     Route: 042
  5. VORICONAZOLE [Interacting]
     Active Substance: VORICONAZOLE
     Dosage: 6 MILLIGRAM/KILOGRAM, TWO TIMES A DAY
     Route: 042

REACTIONS (6)
  - Hepatotoxicity [Unknown]
  - Cardiovascular insufficiency [Unknown]
  - Drug level increased [Recovered/Resolved]
  - Drug interaction [Unknown]
  - Off label use [Unknown]
  - Drug level above therapeutic [Recovered/Resolved]
